FAERS Safety Report 4806724-6 (Version None)
Quarter: 2005Q4

REPORT INFORMATION
  Report Type: 
  Country: None (occurrence: None)
  Receive Date: 20051019
  Receipt Date: 20051011
  Transmission Date: 20060501
  Serious: Yes (Other)
  Sender: FDA-Public Use
  Company Number: TPA2005A01227

PATIENT
  Age: 19 Year
  Sex: Male

DRUGS (1)
  1. ROZEREM [Suspect]
     Dosage: PER ORAL
     Route: 048
     Dates: start: 20051001, end: 20051001

REACTIONS (1)
  - CONVULSION [None]
